FAERS Safety Report 12961786 (Version 1)
Quarter: 2016Q4

REPORT INFORMATION
  Report Type: Spontaneous
  Country: US (occurrence: US)
  Receive Date: 20161121
  Receipt Date: 20161121
  Transmission Date: 20170207
  Serious: No
  Sender: FDA-Public Use
  Company Number: US-PFIZER INC-2016537677

PATIENT
  Age: 66 Year
  Sex: Female
  Weight: 91 kg

DRUGS (3)
  1. LYRICA [Suspect]
     Active Substance: PREGABALIN
     Indication: DIABETIC NEUROPATHY
     Dosage: 75 MG, UNK
  2. LYRICA [Suspect]
     Active Substance: PREGABALIN
     Indication: NERVE INJURY
  3. LYRICA [Suspect]
     Active Substance: PREGABALIN
     Indication: FIBROMYALGIA
     Dosage: 100 MG, 2X/DAY, IN THE MORNING AND EVENING

REACTIONS (7)
  - Drug intolerance [Unknown]
  - Irritability [Unknown]
  - Dry mouth [Unknown]
  - Insomnia [Recovering/Resolving]
  - Peripheral swelling [Unknown]
  - Depression [Unknown]
  - Pain [Unknown]
